FAERS Safety Report 6317690-9 (Version None)
Quarter: 2009Q3

REPORT INFORMATION
  Report Type: 
  Country: None (occurrence: None)
  Receive Date: 20090821
  Receipt Date: 20090813
  Transmission Date: 20100115
  Serious: Yes (Hospitalization)
  Sender: FDA-Public Use
  Company Number: PHHY2009FR34068

PATIENT
  Sex: Male

DRUGS (3)
  1. TRILEPTAL [Suspect]
     Indication: EPILEPSY
     Dosage: 2700 MG, QD
     Route: 048
  2. TRILEPTAL [Suspect]
     Dosage: 11200 MG, QD
     Route: 048
     Dates: start: 20090718
  3. STAMARIL [Suspect]
     Dosage: UNK
     Dates: start: 20090624

REACTIONS (6)
  - C-REACTIVE PROTEIN INCREASED [None]
  - CONVULSION [None]
  - HYPONATRAEMIA [None]
  - LOSS OF CONSCIOUSNESS [None]
  - METABOLIC ENCEPHALOPATHY [None]
  - PYREXIA [None]
